FAERS Safety Report 7523852-5 (Version None)
Quarter: 2011Q2

REPORT INFORMATION
  Report Type: 
  Country: None (occurrence: None)
  Receive Date: 20110603
  Receipt Date: 20110523
  Transmission Date: 20111010
  Serious: Yes (Hospitalization)
  Sender: FDA-Public Use
  Company Number: FR-MYLANLABS-2011S1011004

PATIENT
  Age: 17 Year
  Sex: Female

DRUGS (4)
  1. MITOGUAZONE [Suspect]
     Indication: HODGKIN'S DISEASE RECURRENT
     Dosage: ON DAYS 1 AND 5 OF CYCLE; RECEIVED AS PART OF MINE REGIMEN
     Route: 065
     Dates: start: 20070401
  2. IFOSFAMIDE [Suspect]
     Indication: HODGKIN'S DISEASE RECURRENT
     Dosage: ON DAYS 1-5 OF THE CYCLE; RECEIVED AS PART OF MINE REGIMEN
     Route: 065
     Dates: start: 20070401
  3. ETOPOSIDE [Suspect]
     Indication: HODGKIN'S DISEASE RECURRENT
     Dosage: ON DAYS 1-3 OF THE CYCLE; RECEIVED AS PART OF MINE REGIMEN
     Route: 065
     Dates: start: 20070401
  4. NAVELBINE [Suspect]
     Indication: HODGKIN'S DISEASE RECURRENT
     Dosage: ON DAYS 1 AND 5 OF CYCLE; RECEIVED AS PART OF MINE REGIMEN
     Route: 065
     Dates: start: 20070401

REACTIONS (6)
  - BLISTER [None]
  - HYPERAESTHESIA [None]
  - PANNICULITIS [None]
  - OEDEMA [None]
  - EPIDERMAL NECROSIS [None]
  - MUCOSAL INFLAMMATION [None]
